FAERS Safety Report 4841754-X (Version None)
Quarter: 2005Q4

REPORT INFORMATION
  Report Type: 
  Country: None (occurrence: None)
  Receive Date: 20051125
  Receipt Date: 20051107
  Transmission Date: 20060501
  Serious: Yes (Death)
  Sender: FDA-Public Use
  Company Number: 2005-DE-04612GD

PATIENT
  Age: 48 Year

DRUGS (2)
  1. MORPHINE [Suspect]
     Dosage: PO
     Route: 048
  2. ETHYLENE GLYCOL (ETHYLENE GLYCOL) [Suspect]
     Dosage: PO
     Route: 048

REACTIONS (3)
  - CHEMICAL POISONING [None]
  - COMPLETED SUICIDE [None]
  - INTENTIONAL OVERDOSE [None]
